FAERS Safety Report 9727118 (Version 1)
Quarter: 2013Q4

REPORT INFORMATION
  Report Type: Spontaneous
  Country: DK (occurrence: DK)
  Receive Date: 20131203
  Receipt Date: 20131203
  Transmission Date: 20140711
  Serious: Yes (Other)
  Sender: FDA-Public Use
  Company Number: DK-UCBSA-104207

PATIENT
  Age: 29 Year
  Sex: Female

DRUGS (5)
  1. CIMZIA [Suspect]
     Indication: RHEUMATOID ARTHRITIS
     Dosage: STRENGHT: 200 MG
     Dates: start: 20130128, end: 20130515
  2. IBUMETIN [Concomitant]
  3. METHOTREXAT [Concomitant]
     Indication: RHEUMATOID ARTHRITIS
  4. FOLIMET [Concomitant]
  5. UNIKALK [Concomitant]

REACTIONS (1)
  - Cervical dysplasia [Unknown]
